FAERS Safety Report 4529514-0 (Version None)
Quarter: 2004Q4

REPORT INFORMATION
  Report Type: 
  Country: None (occurrence: None)
  Receive Date: 20041216
  Receipt Date: 20040921
  Transmission Date: 20050328
  Serious: No
  Sender: FDA-Public Use
  Company Number: US-MERCK-0409USA01813

PATIENT
  Age: 69 Year
  Sex: Female
  Weight: 57 kg

DRUGS (8)
  1. FOSAMAX [Suspect]
     Indication: OSTEOPENIA
     Route: 048
     Dates: start: 20030808, end: 20040909
  2. FOSAMAX [Suspect]
     Route: 048
     Dates: start: 20040901
  3. VITAMINS (UNSPECIFIED) [Concomitant]
     Route: 065
  4. HERBS (UNSPECIFIED) [Concomitant]
     Route: 065
  5. FOSAMAX [Suspect]
     Indication: OSTEOPOROSIS
     Route: 048
     Dates: start: 19990101, end: 20030801
  6. FOSAMAX [Suspect]
     Route: 048
     Dates: start: 20030808, end: 20040909
  7. FOSAMAX [Suspect]
     Route: 048
     Dates: start: 20040901
  8. FOSAMAX [Suspect]
     Route: 048
     Dates: start: 19990101, end: 20030801

REACTIONS (5)
  - BONE DENSITY DECREASED [None]
  - COUGH [None]
  - MEDICATION ERROR [None]
  - OSTEOPENIA [None]
  - THROAT IRRITATION [None]
